FAERS Safety Report 7387735-6 (Version None)
Quarter: 2011Q1

REPORT INFORMATION
  Report Type: 
  Country: None (occurrence: None)
  Receive Date: 20110331
  Receipt Date: 20100830
  Transmission Date: 20110831
  Serious: Yes (Hospitalization, Other)
  Sender: FDA-Public Use
  Company Number: US-BAYER-200943401NA

PATIENT
  Sex: Female
  Weight: 52.273 kg

DRUGS (19)
  1. LIDOCAINE/PRILOCAINE [LIDOCAINE,PRILOCAINE] [Concomitant]
     Dosage: 2.5 MG/2.5 MG
     Route: 048
     Dates: start: 20070519
  2. YASMIN [Suspect]
     Indication: POSTURAL ORTHOSTATIC TACHYCARDIA SYNDROME
     Route: 048
  3. MIDODRINE HYDROCHLORIDE [Concomitant]
     Route: 065
  4. YAZ [Suspect]
     Indication: VAGINAL HAEMORRHAGE
     Route: 048
     Dates: start: 20070318, end: 20070502
  5. RUSCUS ACULEATUS [Concomitant]
     Indication: POSTURAL ORTHOSTATIC TACHYCARDIA SYNDROME
     Route: 065
  6. ONDANSETRON [Concomitant]
     Route: 065
     Dates: start: 20070501, end: 20070501
  7. MORPHINE [Concomitant]
     Route: 065
     Dates: start: 20070501, end: 20070501
  8. KETOROLAC [Concomitant]
     Route: 065
     Dates: start: 20070501, end: 20070501
  9. YAZ [Suspect]
     Indication: POSTURAL ORTHOSTATIC TACHYCARDIA SYNDROME
  10. IBUPROFEN [Concomitant]
     Route: 065
  11. RANITIDINE [Concomitant]
     Route: 065
     Dates: start: 20070501, end: 20070501
  12. MIDODRINE HYDROCHLORIDE [Concomitant]
     Indication: POSTURAL ORTHOSTATIC TACHYCARDIA SYNDROME
     Route: 065
  13. FLORINEF [Concomitant]
     Indication: POSTURAL ORTHOSTATIC TACHYCARDIA SYNDROME
     Route: 065
  14. MULTIVITAMIN [Concomitant]
     Indication: VITAMIN SUPPLEMENTATION
     Route: 065
  15. FLUDROCORTISONE [Concomitant]
     Route: 065
     Dates: start: 20070501, end: 20070501
  16. TRAMADOL [Concomitant]
     Route: 065
     Dates: start: 20070501, end: 20070501
  17. YAZ [Suspect]
  18. LICORICE [Concomitant]
     Indication: POSTURAL ORTHOSTATIC TACHYCARDIA SYNDROME
     Route: 065
  19. AMOXICILLIN [Concomitant]
     Dosage: 500 MG, UNK
     Route: 048
     Dates: start: 20070424

REACTIONS (2)
  - PULMONARY EMBOLISM [None]
  - DEEP VEIN THROMBOSIS [None]
